FAERS Safety Report 8403659-7 (Version None)
Quarter: 2012Q2

REPORT INFORMATION
  Report Type: 
  Country: None (occurrence: None)
  Receive Date: 20120601
  Receipt Date: 20120523
  Transmission Date: 20120825
  Serious: Yes (Hospitalization)
  Sender: FDA-Public Use
  Company Number: GB-ASTRAZENECA-2012SE33393

PATIENT
  Age: 80 Year
  Sex: Male

DRUGS (8)
  1. ASPIRIN [Concomitant]
  2. LEUPROLIDE ACETATE [Concomitant]
  3. MIDODRINE HYDROCHLORIDE [Concomitant]
  4. CITALOPRAM HYDROBROMIDE [Concomitant]
  5. OMEPRAZOLE [Suspect]
     Indication: PROPHYLAXIS AGAINST GASTROINTESTINAL ULCER
     Route: 048
     Dates: start: 20120131, end: 20120419
  6. BISOPROLOL FUMARATE [Concomitant]
  7. ACETAMINOPHEN [Concomitant]
  8. ATORVASTATIN CALCIUM [Concomitant]

REACTIONS (2)
  - DIARRHOEA [None]
  - ELECTROLYTE IMBALANCE [None]
